FAERS Safety Report 8365301-3 (Version None)
Quarter: 2012Q2

REPORT INFORMATION
  Report Type: 
  Country: None (occurrence: None)
  Receive Date: 20120516
  Receipt Date: 20120511
  Transmission Date: 20120825
  Serious: Yes (Death, Life-Threatening, Hospitalization)
  Sender: FDA-Public Use
  Company Number: US-MPIJNJ-2012-02715

PATIENT
  Sex: Male
  Weight: 95.3 kg

DRUGS (5)
  1. MIDODRINE HYDROCHLORIDE [Concomitant]
     Indication: AUTONOMIC NERVOUS SYSTEM IMBALANCE
     Dosage: 10 MG, TID
     Route: 048
  2. VELCADE [Suspect]
     Indication: AMYLOIDOSIS
     Dosage: 1.0 MG/M2, CYCLIC
     Route: 042
     Dates: start: 20120330, end: 20120409
  3. DEXAMETHASONE [Suspect]
     Indication: AMYLOIDOSIS
     Dosage: UNK
     Dates: end: 20120309
  4. DEXAMETHASONE [Suspect]
     Indication: PROPHYLAXIS OF NAUSEA AND VOMITING
  5. MELPHALAN HYDROCHLORIDE [Suspect]
     Indication: AMYLOIDOSIS
     Dosage: 70 MG/M2, CYCLIC
     Route: 042
     Dates: start: 20120403, end: 20120404

REACTIONS (4)
  - GRAFT VERSUS HOST DISEASE [None]
  - HYPOTENSION [None]
  - SEPSIS [None]
  - GASTROINTESTINAL HAEMORRHAGE [None]
